FAERS Safety Report 9307726 (Version 5)
Quarter: 2014Q2

REPORT INFORMATION
  Report Type: Report from Study
  Country: FR (occurrence: FR)
  Receive Date: 20130524
  Receipt Date: 20140429
  Transmission Date: 20141212
  Serious: Yes (Death, Hospitalization, Other)
  Sender: FDA-Public Use
  Company Number: FR-MILLENNIUM PHARMACEUTICALS, INC.-2013-03959

PATIENT
  Sex: 0

DRUGS (14)
  1. VELCADE [Suspect]
     Indication: PLASMA CELL MYELOMA
     Dosage: UNK
     Route: 042
     Dates: start: 20130117, end: 20130326
  2. DEXAMETHASONE [Suspect]
     Indication: PLASMA CELL MYELOMA
     Dosage: 20 MG, QD
     Route: 042
     Dates: start: 20130117, end: 20130327
  3. DIFFU K [Concomitant]
     Dosage: 1800 MG, UNK
     Route: 048
     Dates: start: 20130213
  4. MOCLAMINE [Concomitant]
     Indication: DEPRESSION
     Dosage: 450 MG, UNK
     Route: 048
     Dates: start: 20130415
  5. SERESTA [Concomitant]
  6. GUTRON [Concomitant]
     Indication: HYPOTENSION
     Dosage: 7.5 MG, UNK
     Route: 048
     Dates: start: 20130404
  7. ATARAX                             /00058401/ [Concomitant]
  8. SMECTA                             /00837601/ [Concomitant]
     Dosage: 9000 MG, UNK
     Dates: start: 20130416
  9. TIORFAN [Concomitant]
     Dosage: 300 MG, UNK
     Route: 048
     Dates: start: 20130329
  10. HYPNOVEL                           /00634103/ [Concomitant]
     Dosage: 12.5 MG, UNK
     Route: 042
  11. LOVENOX [Concomitant]
     Dosage: UNK
     Route: 058
     Dates: start: 20130404
  12. DEXERYL                            /00557601/ [Concomitant]
     Route: 048
  13. BETAMETHASONE [Concomitant]
  14. AMYCOR                             /00806601/ [Concomitant]
     Route: 062

REACTIONS (2)
  - Pyelonephritis [Fatal]
  - Peripheral sensorimotor neuropathy [Unknown]
